FAERS Safety Report 8876776 (Version 2)
Quarter: 2012Q4

REPORT INFORMATION
  Report Type: Spontaneous
  Country: US (occurrence: None)
  Receive Date: 20121024
  Receipt Date: 20121102
  Transmission Date: 20130627
  Serious: Yes (Disabling)
  Sender: FDA-Public Use
  Company Number: JPI-P-025577

PATIENT
  Age: 38 Year
  Sex: Female

DRUGS (1)
  1. XYREM [Suspect]
     Indication: CATAPLEXY
     Route: 048
     Dates: start: 20120403, end: 2012

REACTIONS (5)
  - Urinary tract infection staphylococcal [None]
  - Injury [None]
  - Ligament injury [None]
  - Nerve injury [None]
  - Pain [None]
